FAERS Safety Report 8482895-8 (Version None)
Quarter: 2012Q2

REPORT INFORMATION
  Report Type: 
  Country: None (occurrence: None)
  Receive Date: 20120625
  Receipt Date: 20120611
  Transmission Date: 20120825
  Serious: Yes (Other)
  Sender: FDA-Public Use
  Company Number: 2012-00895

PATIENT
  Age: 24 Year
  Sex: Female

DRUGS (3)
  1. PIROXICAM [Suspect]
     Indication: PRODUCT USED FOR UNKNOWN INDICATION
     Dosage: (20 MG) INTRAMUSCULAR
     Route: 030
  2. RANITIDINE [Suspect]
     Indication: PRODUCT USED FOR UNKNOWN INDICATION
     Dosage: (150 MG), INTRAVENOUS
     Route: 042
  3. CEFTRIAXONE [Suspect]
     Indication: PRODUCT USED FOR UNKNOWN INDICATION
     Dosage: (1 GM) INTRAVENOUS
     Route: 042

REACTIONS (7)
  - CHOLELITHIASIS [None]
  - YELLOW SKIN [None]
  - ASPARTATE AMINOTRANSFERASE INCREASED [None]
  - HEPATITIS CHOLESTATIC [None]
  - BLOOD BILIRUBIN INCREASED [None]
  - ALANINE AMINOTRANSFERASE INCREASED [None]
  - BLOOD ALKALINE PHOSPHATASE INCREASED [None]
